FAERS Safety Report 17228771 (Version 1)
Quarter: 2020Q1

REPORT INFORMATION
  Report Type: Spontaneous
  Country: CN (occurrence: CN)
  Receive Date: 20200103
  Receipt Date: 20200103
  Transmission Date: 20200409
  Serious: Yes (Hospitalization, Other)
  Sender: FDA-Public Use
  Company Number: CN-PFIZER INC-2019560345

PATIENT
  Age: 73 Year
  Sex: Male
  Weight: 63 kg

DRUGS (2)
  1. LIPITOR [Suspect]
     Active Substance: ATORVASTATIN CALCIUM
     Indication: LIPIDS ABNORMAL
     Dosage: 20 MG, 1X/DAY
     Route: 048
     Dates: start: 20191205, end: 20191214
  2. BETALOC [METOPROLOL SUCCINATE] [Concomitant]
     Indication: HEART RATE ABNORMAL
     Dosage: 47.5 MG, 1X/DAY
     Route: 048
     Dates: start: 20191205, end: 20191227

REACTIONS (4)
  - Blood creatine phosphokinase increased [Recovering/Resolving]
  - Inadequate diet [Unknown]
  - Cough [Unknown]
  - Dyspnoea [Unknown]

NARRATIVE: CASE EVENT DATE: 201912
